FAERS Safety Report 4269170-2 (Version None)
Quarter: 2004Q1

REPORT INFORMATION
  Report Type: 
  Country: None (occurrence: None)
  Receive Date: 20040108
  Receipt Date: 20031225
  Transmission Date: 20041129
  Serious: Yes (Hospitalization)
  Sender: FDA-Public Use
  Company Number: 2003-BP-10682NB

PATIENT
  Age: 88 Year
  Sex: Male

DRUGS (1)
  1. MICARDIS [Suspect]
     Dosage: 40 MG PO
     Route: 048
     Dates: start: 20030310, end: 20030324

REACTIONS (1)
  - SYSTEMIC LUPUS ERYTHEMATOSUS [None]
